FAERS Safety Report 5430770-5 (Version None)
Quarter: 2007Q3

REPORT INFORMATION
  Report Type: 
  Country: None (occurrence: None)
  Receive Date: 20070830
  Receipt Date: 20061115
  Transmission Date: 20080115
  Serious: No
  Sender: FDA-Public Use
  Company Number: A0627695A

PATIENT
  Age: 52 Year
  Sex: Female

DRUGS (3)
  1. WELLBUTRIN XL [Suspect]
     Indication: DEPRESSION
     Dosage: 150MG VARIABLE DOSE
     Route: 048
     Dates: start: 20040101
  2. EFFEXOR [Concomitant]
  3. PROMETRIUM [Concomitant]

REACTIONS (2)
  - INSOMNIA [None]
  - WEIGHT INCREASED [None]
